FAERS Safety Report 12990967 (Version 1)
Quarter: 2016Q4

REPORT INFORMATION
  Report Type: Spontaneous
  Country: GB (occurrence: GB)
  Receive Date: 20161201
  Receipt Date: 20161201
  Transmission Date: 20170207
  Serious: Yes (Life-Threatening)
  Sender: FDA-Public Use
  Company Number: GB-FRESENIUS KABI-FK201609268

PATIENT
  Age: 24 Year
  Sex: Male
  Weight: 76.8 kg

DRUGS (10)
  1. PROPOFOL (MANUFACTURER UNKNOWN) [Suspect]
     Active Substance: PROPOFOL
     Indication: PRODUCT USED FOR UNKNOWN INDICATION
     Route: 042
     Dates: start: 20160903, end: 20160904
  2. RANITIDINE. [Concomitant]
     Active Substance: RANITIDINE
  3. NORADRENALIN [Concomitant]
     Active Substance: NOREPINEPHRINE\NOREPINEPHRINE BITARTRATE
  4. AMOXICILLIN. [Concomitant]
     Active Substance: AMOXICILLIN
  5. ATRACURIUM [Concomitant]
     Active Substance: ATRACURIUM
  6. CYPROHEPTADINE. [Concomitant]
     Active Substance: CYPROHEPTADINE
  7. AZTREONAM. [Concomitant]
     Active Substance: AZTREONAM
  8. MIDAZOLAM [Concomitant]
     Active Substance: MIDAZOLAM\MIDAZOLAM HYDROCHLORIDE
  9. CHLORPROMAZINE. [Concomitant]
     Active Substance: CHLORPROMAZINE
  10. MORPHINE [Concomitant]
     Active Substance: MORPHINE

REACTIONS (3)
  - Serotonin syndrome [Recovered/Resolved]
  - Muscle rigidity [Recovered/Resolved]
  - Hyperthermia [Recovered/Resolved]

NARRATIVE: CASE EVENT DATE: 20160903
